FAERS Safety Report 16860955 (Version 2)
Quarter: 2020Q1

REPORT INFORMATION
  Report Type: Spontaneous
  Country: GB (occurrence: GB)
  Receive Date: 20190927
  Receipt Date: 20200217
  Transmission Date: 20200409
  Serious: Yes (Death)
  Sender: FDA-Public Use
  Company Number: GB-PFIZER INC-2019411829

PATIENT
  Age: 53 Year
  Sex: Female

DRUGS (3)
  1. CEFTAZIDIME. [Suspect]
     Active Substance: CEFTAZIDIME
     Indication: ACUTE MYELOID LEUKAEMIA
     Dosage: UNK
  2. AVIBACTAM SODIUM. [Suspect]
     Active Substance: AVIBACTAM SODIUM
     Indication: ACUTE MYELOID LEUKAEMIA
     Dosage: UNK
  3. LINEZOLID. [Suspect]
     Active Substance: LINEZOLID
     Dosage: UNK

REACTIONS (6)
  - Disease progression [Unknown]
  - Off label use [Unknown]
  - Product use in unapproved indication [Unknown]
  - Death [Fatal]
  - Diarrhoea [Unknown]
  - Pyrexia [Unknown]
